FAERS Safety Report 10177710 (Version 1)
Quarter: 2014Q2

REPORT INFORMATION
  Report Type: Spontaneous
  Country: US (occurrence: US)
  Receive Date: 20140516
  Receipt Date: 20140516
  Transmission Date: 20141212
  Serious: No
  Sender: FDA-Public Use
  Company Number: US-SA-2014SA036516

PATIENT
  Age: 69 Year
  Sex: Female

DRUGS (3)
  1. APIDRA SOLOSTAR [Suspect]
     Indication: TYPE 2 DIABETES MELLITUS
     Dosage: FREQUENCY: WITH MEALS DOSE:10 UNIT(S)
     Route: 065
  2. SOLOSTAR [Concomitant]
  3. LANTUS [Concomitant]

REACTIONS (1)
  - Visual acuity reduced [Unknown]
